FAERS Safety Report 8643852 (Version 3)
Quarter: 2013Q4

REPORT INFORMATION
  Report Type: Spontaneous
  Country: JP (occurrence: JP)
  Receive Date: 20120629
  Receipt Date: 20131101
  Transmission Date: 20140711
  Serious: Yes (Other)
  Sender: FDA-Public Use
  Company Number: JP-009507513-1206USA04765

PATIENT
  Age: 52 Year
  Sex: Male

DRUGS (12)
  1. DEXAMETHASONE [Suspect]
     Dosage: 4 MG, Q6H
  2. DEXAMETHASONE [Suspect]
     Dosage: DIVIDED DOSE FREQUENCY U
  3. DEXAMETHASONE [Suspect]
     Dosage: DIVIDED DOSE FREQUENCY U
  4. DEXAMETHASONE [Suspect]
     Dosage: DIVIDED DOSE FREQUENCY U
  5. DEXAMETHASONE [Suspect]
     Dosage: DIVIDED DOSE FREQUENCY U
  6. DEXAMETHASONE [Suspect]
     Dosage: DIVIDED DOSE FREQUENCY U
  7. DEXAMETHASONE [Suspect]
     Dosage: FROM DAY 40 TO DAY 109
  8. DEXAMETHASONE [Suspect]
     Dosage: DIVIDED DOSE FREQUENCY U
  9. MEROPENEM [Concomitant]
     Dosage: 2 G, TID
  10. MEROPENEM [Concomitant]
     Dosage: DIVIDED DOSE FREQUENCY U
  11. CEFTRIAXONE SODIUM [Concomitant]
     Dosage: 2 G, BID
  12. LINEZOLID [Concomitant]
     Dosage: 600 MG, BID
     Route: 048

REACTIONS (1)
  - Ischaemic stroke [Recovering/Resolving]
